FAERS Safety Report 14830123 (Version 1)
Quarter: 2018Q2

REPORT INFORMATION
  Report Type: Spontaneous
  Country: US (occurrence: US)
  Receive Date: 20180430
  Receipt Date: 20180430
  Transmission Date: 20180711
  Serious: Yes (Life-Threatening, Hospitalization, Other)
  Sender: FDA-Public Use
  Company Number: US-BAUSCH-BL-2018-011859

PATIENT
  Age: 4 Month
  Sex: Male

DRUGS (8)
  1. PREDNISOLONE. [Suspect]
     Active Substance: PREDNISOLONE
     Indication: ANGIOSARCOMA
     Dosage: TAPERING DOSE
     Route: 065
  2. PROPRANOLOL [Concomitant]
     Active Substance: PROPRANOLOL HYDROCHLORIDE
     Indication: HAEMANGIOMA-THROMBOCYTOPENIA SYNDROME
  3. PROPRANOLOL [Concomitant]
     Active Substance: PROPRANOLOL HYDROCHLORIDE
     Indication: ANGIOSARCOMA
  4. VINCRISTINE [Concomitant]
     Active Substance: VINCRISTINE
     Indication: HAEMANGIOMA-THROMBOCYTOPENIA SYNDROME
     Dosage: WEEKLY
     Route: 042
  5. SIROLIMUS. [Suspect]
     Active Substance: SIROLIMUS
     Indication: HAEMANGIOMA-THROMBOCYTOPENIA SYNDROME
     Dosage: 0.05 MG/KG FOR 12HOURS, TROUGH GOAL OF 8 TO 15 NG/ML
     Route: 065
  6. SIROLIMUS. [Suspect]
     Active Substance: SIROLIMUS
     Indication: ANGIOSARCOMA
  7. VINCRISTINE [Concomitant]
     Active Substance: VINCRISTINE
     Indication: ANGIOSARCOMA
  8. PREDNISOLONE. [Suspect]
     Active Substance: PREDNISOLONE
     Indication: HAEMANGIOMA-THROMBOCYTOPENIA SYNDROME
     Route: 065

REACTIONS (1)
  - Pneumocystis jirovecii pneumonia [Recovering/Resolving]
